FAERS Safety Report 15066815 (Version 1)
Quarter: 2018Q2

REPORT INFORMATION
  Report Type: Spontaneous
  Country: FR (occurrence: FR)
  Receive Date: 20180626
  Receipt Date: 20180626
  Transmission Date: 20180711
  Serious: Yes (Other)
  Sender: FDA-Public Use
  Company Number: FR-PFIZER INC-2018251858

PATIENT
  Age: 56 Year
  Sex: Male

DRUGS (4)
  1. ATORVASTATIN CALCIUM. [Suspect]
     Active Substance: ATORVASTATIN CALCIUM
     Indication: ACUTE CORONARY SYNDROME
     Dosage: 80 MG, 1X/DAY: IN THE EVENING
     Route: 048
     Dates: start: 20170407, end: 20180419
  2. BRINTELLIX [Concomitant]
     Active Substance: VORTIOXETINE HYDROBROMIDE
     Indication: DEPRESSION
     Dosage: 5 MG, 1X/DAY: IN THE MORNING
     Route: 048
  3. ASPIRINE [Interacting]
     Active Substance: ASPIRIN
     Indication: ACUTE CORONARY SYNDROME
     Dosage: 100 MG, 1X/DAY: IN THE MORNING
     Route: 048
     Dates: start: 20170407
  4. BRILIQUE [Interacting]
     Active Substance: TICAGRELOR
     Indication: ACUTE CORONARY SYNDROME
     Dosage: 180 MG, DAILY: 90MG IN THE MORNING AND IN THE EVENING
     Route: 048
     Dates: start: 20170407

REACTIONS (3)
  - Drug interaction [Recovering/Resolving]
  - Arthralgia [Recovering/Resolving]
  - Enthesopathy [Recovering/Resolving]

NARRATIVE: CASE EVENT DATE: 201705
